FAERS Safety Report 24899880 (Version 1)
Quarter: 2025Q1

REPORT INFORMATION
  Report Type: Spontaneous
  Country: ES (occurrence: ES)
  Receive Date: 20250129
  Receipt Date: 20250129
  Transmission Date: 20250409
  Serious: Yes (Other)
  Sender: TEVA
  Company Number: None

PATIENT
  Age: 32 Year
  Sex: Male
  Weight: 85 kg

DRUGS (1)
  1. TAMSULOSIN [Suspect]
     Active Substance: TAMSULOSIN
     Indication: Nephrolithiasis
     Dosage: 1 TIME A DAY, TAMSULOSIN (2751A)
     Route: 048
     Dates: start: 20241228

REACTIONS (2)
  - Haematospermia [Unknown]
  - Ejaculation delayed [Unknown]

NARRATIVE: CASE EVENT DATE: 20250101
